FAERS Safety Report 4787729-0 (Version None)
Quarter: 2005Q3

REPORT INFORMATION
  Report Type: 
  Country: None (occurrence: None)
  Receive Date: 20050914
  Receipt Date: 20050121
  Transmission Date: 20060218
  Serious: Yes (Disabling)
  Sender: FDA-Public Use
  Company Number: 163-20785-05010389

PATIENT
  Age: 72 Year
  Sex: Female

DRUGS (9)
  1. THALOMID [Suspect]
     Indication: MULTIPLE MYELOMA
     Dosage: 50-200, DAILY, ORAL; 50 MG, DAILY, ORAL
     Route: 048
     Dates: start: 20040504, end: 20040101
  2. THALOMID [Suspect]
     Indication: MULTIPLE MYELOMA
     Dosage: 50-200, DAILY, ORAL; 50 MG, DAILY, ORAL
     Route: 048
     Dates: start: 20040101, end: 20040706
  3. DEXAMETHASONE [Suspect]
     Indication: MULTIPLE MYELOMA
  4. METHOTREXATE [Concomitant]
  5. LEVOTHYROXINE SODIUM [Concomitant]
  6. PEPCID [Concomitant]
  7. BACTRIM [Concomitant]
  8. PREDNISONE [Concomitant]
  9. FOLIC ACID [Concomitant]

REACTIONS (2)
  - CONDITION AGGRAVATED [None]
  - DIZZINESS [None]
